FAERS Safety Report 5411319-X (Version None)
Quarter: 2007Q3

REPORT INFORMATION
  Report Type: 
  Country: None (occurrence: None)
  Receive Date: 20070810
  Receipt Date: 20070731
  Transmission Date: 20080115
  Serious: Yes (Hospitalization)
  Sender: FDA-Public Use
  Company Number: JP-SANOFI-SYNTHELABO-F01200700953

PATIENT
  Age: 35 Year
  Sex: Female

DRUGS (8)
  1. BRUFEN [Concomitant]
     Indication: NASOPHARYNGITIS
     Route: 048
     Dates: start: 20070608, end: 20070611
  2. ASTOMIN [Concomitant]
     Indication: NASOPHARYNGITIS
     Route: 048
     Dates: start: 20070608, end: 20070611
  3. AMOBAN [Concomitant]
     Indication: INSOMNIA
     Route: 048
     Dates: start: 20040706, end: 20070524
  4. CERCINE [Concomitant]
     Indication: DEPRESSION
     Route: 048
     Dates: start: 20070330, end: 20070725
  5. DEPAKENE [Concomitant]
     Indication: DEPRESSION
     Route: 048
     Dates: start: 20060310, end: 20070725
  6. ANAFRANIL [Suspect]
     Indication: DEPRESSION
     Dosage: 100MG DIVIDED IN 3 DOSES 100 MG
     Route: 048
     Dates: start: 20070119, end: 20070524
  7. ANAFRANIL [Suspect]
     Dosage: 75 MG DIVIDED INTO 2 DOSES 75 MG
     Route: 048
     Dates: start: 20070525, end: 20070725
  8. ZOLPIDEM TARTRATE [Suspect]
     Indication: INSOMNIA
     Dosage: 12.5 MG
     Route: 048
     Dates: start: 20070608, end: 20070725

REACTIONS (1)
  - ILEUS [None]
